FAERS Safety Report 4314505-5 (Version None)
Quarter: 2004Q1

REPORT INFORMATION
  Report Type: 
  Country: None (occurrence: None)
  Receive Date: 20040308
  Receipt Date: 20040223
  Transmission Date: 20041129
  Serious: Yes (Hospitalization)
  Sender: FDA-Public Use
  Company Number: US012789

PATIENT
  Age: 21 Year
  Sex: Female
  Weight: 68.4932 kg

DRUGS (4)
  1. GABITRIL [Suspect]
     Indication: ANXIETY
     Dosage: 2 MG QAM ORAL
     Route: 048
     Dates: start: 20040215, end: 20040217
  2. GABITRIL [Suspect]
     Indication: BIPOLAR DISORDER
     Dosage: 2 MG QAM ORAL
     Route: 048
     Dates: start: 20040215, end: 20040217
  3. XANAX - SLOW RELEASE [Concomitant]
  4. TRILEPTAL [Concomitant]

REACTIONS (9)
  - CORNEAL REFLEX DECREASED [None]
  - DYSPHAGIA [None]
  - DYSPNOEA [None]
  - FATIGUE [None]
  - FEELING DRUNK [None]
  - PARALYSIS [None]
  - SOMNOLENCE [None]
  - VISUAL DISTURBANCE [None]
  - WALKING AID USER [None]
